FAERS Safety Report 13086741 (Version 2)
Quarter: 2017Q1

REPORT INFORMATION
  Report Type: Report from Study
  Country: None (occurrence: US)
  Receive Date: 20170104
  Receipt Date: 20170216
  Transmission Date: 20170428
  Serious: Yes (Hospitalization, Other)
  Sender: FDA-Public Use
  Company Number: US-ABBVIE-17K-163-1827970-00

PATIENT
  Age: 55 Year
  Sex: Male

DRUGS (2)
  1. HUMIRA [Suspect]
     Active Substance: ADALIMUMAB
     Route: 058
  2. HUMIRA [Suspect]
     Active Substance: ADALIMUMAB
     Indication: CROHN^S DISEASE
     Route: 058
     Dates: end: 2016

REACTIONS (9)
  - Nerve injury [Recovering/Resolving]
  - Bedridden [Recovering/Resolving]
  - Intervertebral disc protrusion [Recovering/Resolving]
  - Intervertebral disc protrusion [Not Recovered/Not Resolved]
  - Abasia [Recovering/Resolving]
  - Hypoaesthesia [Recovering/Resolving]
  - Back injury [Recovering/Resolving]
  - Arthropathy [Not Recovered/Not Resolved]
  - Pain [Recovering/Resolving]

NARRATIVE: CASE EVENT DATE: 201612
